FAERS Safety Report 7464306-4 (Version None)
Quarter: 2011Q2

REPORT INFORMATION
  Report Type: 
  Country: None (occurrence: None)
  Receive Date: 20110509
  Receipt Date: 20110428
  Transmission Date: 20111010
  Serious: Yes (Hospitalization, Other)
  Sender: FDA-Public Use
  Company Number: BR-BIOGENIDEC-2010BI021966

PATIENT
  Age: 41 Year
  Sex: Male

DRUGS (8)
  1. RIVOTRIL [Concomitant]
     Indication: DEPRESSION
  2. FLUOXETINE [Concomitant]
     Indication: DEPRESSION
  3. SERTALINE [Concomitant]
     Indication: DEPRESSION
  4. DIAZEPAN [Concomitant]
  5. CARBAMAZEPINE [Concomitant]
  6. AVONEX [Suspect]
     Indication: MULTIPLE SCLEROSIS
     Route: 030
     Dates: start: 20100621
  7. VENLAFAXINE [Concomitant]
  8. AVONEX [Suspect]
     Route: 030
     Dates: start: 20100621

REACTIONS (14)
  - TREMOR [None]
  - PYREXIA [None]
  - SLUGGISHNESS [None]
  - CONVULSION [None]
  - SYNCOPE [None]
  - FATIGUE [None]
  - HEADACHE [None]
  - PAIN [None]
  - PARAESTHESIA [None]
  - BURNING SENSATION [None]
  - BLINDNESS [None]
  - PAIN IN EXTREMITY [None]
  - HYPERAESTHESIA [None]
  - MUSCULAR WEAKNESS [None]
